FAERS Safety Report 24007576 (Version 1)
Quarter: 2024Q2

REPORT INFORMATION
  Report Type: Spontaneous
  Country: US (occurrence: US)
  Receive Date: 20240625
  Receipt Date: 20240625
  Transmission Date: 20240716
  Serious: Yes (Hospitalization)
  Sender: FDA-Public Use
  Company Number: US-ENDO USA, INC.-2024-002609

PATIENT
  Age: 8 Decade
  Sex: Female

DRUGS (27)
  1. KETALAR [Suspect]
     Active Substance: KETAMINE HYDROCHLORIDE
     Indication: Induction of anaesthesia
     Dosage: 100 MILLIGRAM, UNKNOWN (ECT 3-DAY 9)
     Route: 065
  2. KETALAR [Suspect]
     Active Substance: KETAMINE HYDROCHLORIDE
     Indication: Depression
     Dosage: 100 MILLIGRAM, UNKNOWN (ECT 13-MAINTENANCE)
     Route: 065
  3. DULOXETINE [Concomitant]
     Active Substance: DULOXETINE
     Indication: Major depression
     Dosage: 60 MILLIGRAM, DAILY (BEFORE ADMISSION)
     Route: 065
  4. DULOXETINE [Concomitant]
     Active Substance: DULOXETINE
     Dosage: 30 MILLIGRAM, UNKNOWN
     Route: 065
  5. DULOXETINE [Concomitant]
     Active Substance: DULOXETINE
     Dosage: 60 MILLIGRAM, DAILY (RE-STARTED)
     Route: 065
  6. DULOXETINE [Concomitant]
     Active Substance: DULOXETINE
     Dosage: 90 MILLIGRAM, DAILY (GRADUALLY INCREASED FROM 60 TO 90 MG/DAY)
     Route: 065
  7. ALPRAZOLAM [Concomitant]
     Active Substance: ALPRAZOLAM
     Indication: Major depression
     Dosage: 0.25 MILLIGRAM, TID (BEFORE ADMISSION)
     Route: 065
  8. ALPRAZOLAM [Concomitant]
     Active Substance: ALPRAZOLAM
     Dosage: WAS INCREASED TO 0.5 MILLIGRAM, TID PRN (DAYS 2 AND 3)
     Route: 065
  9. LORAZEPAM [Concomitant]
     Active Substance: LORAZEPAM
     Indication: Anxiety
     Dosage: 1 MILLIGRAM, TID
     Route: 065
  10. LORAZEPAM [Concomitant]
     Active Substance: LORAZEPAM
     Indication: Major depression
     Dosage: 0.5 MILLIGRAM, PRN (ONCE AS DAY AS NEEDED)
     Route: 065
  11. LORAZEPAM [Concomitant]
     Active Substance: LORAZEPAM
     Dosage: 0.5 MILLIGRAM, BID
     Route: 065
  12. MIRTAZAPINE [Concomitant]
     Active Substance: MIRTAZAPINE
     Indication: Major depression
     Dosage: 15 MILLIGRAM, UNKNOWN
     Route: 065
  13. MIRTAZAPINE [Concomitant]
     Active Substance: MIRTAZAPINE
     Dosage: TITRATED TO 30 MILLIGRAM NIGHTLY
     Route: 065
  14. CARIPRAZINE [Concomitant]
     Active Substance: CARIPRAZINE
     Indication: Major depression
     Dosage: UNK UNKNOWN, UNKNOWN
     Route: 065
  15. RISPERIDONE [Concomitant]
     Active Substance: RISPERIDONE
     Indication: Major depression
     Dosage: 0.5 MILLIGRAM, UNKNOWN (MORNING)
     Route: 065
  16. RISPERIDONE [Concomitant]
     Active Substance: RISPERIDONE
     Dosage: 1 MILLIGRAM, OD (NIGHTLY)
     Route: 065
  17. SIMVASTATIN [Concomitant]
     Active Substance: SIMVASTATIN
     Indication: Product used for unknown indication
     Dosage: 40 MILLIGRAM, OD (AT BEDTIME)
     Route: 065
  18. LOSARTAN [Concomitant]
     Active Substance: LOSARTAN
     Indication: Product used for unknown indication
     Dosage: 40 MILLIGRAM, DAILY
     Route: 065
  19. LEVOTHYROXINE [Concomitant]
     Active Substance: LEVOTHYROXINE\LEVOTHYROXINE SODIUM
     Indication: Product used for unknown indication
     Dosage: 75 MICROGRAM, DAILY
     Route: 065
  20. METHOHEXITAL [Concomitant]
     Active Substance: METHOHEXITAL
     Indication: Induction of anaesthesia
     Dosage: UNK UNKNOWN, UNKNOWN (ECT 1-DAY 4)
     Route: 065
  21. METHOHEXITAL [Concomitant]
     Active Substance: METHOHEXITAL
     Dosage: UNK UNKNOWN, UNKNOWN (ECT 2-DAY 6)
     Route: 065
  22. METHOHEXITAL [Concomitant]
     Active Substance: METHOHEXITAL
     Dosage: UNK UNKNOWN, UNKNOWN (RECEIVED 15 MORE BILATERAL ECT SESSIONS WITH METHOHEXITAL BACK ON PSYCHIATRIC
  23. SUCCINYLCHOLINE [Concomitant]
     Active Substance: SUCCINYLCHOLINE
     Indication: Induction of anaesthesia
     Dosage: UNK UNKNOWN, UNKNOWN (ECT 1-DAY 4)
     Route: 065
  24. SUCCINYLCHOLINE [Concomitant]
     Active Substance: SUCCINYLCHOLINE
     Dosage: UNK UNKNOWN, UNKNOWN (ECT 2-DAY 6)
     Route: 065
  25. SUCCINYLCHOLINE [Concomitant]
     Active Substance: SUCCINYLCHOLINE
     Dosage: 120 MILLIGRAM, UNKNOWN (ECT 3-DAY 9)
     Route: 065
  26. SUCCINYLCHOLINE [Concomitant]
     Active Substance: SUCCINYLCHOLINE
     Dosage: UNK UNKNOWN, UNKNOWN (RECEIVED 15 MORE BIALTERAL ECT SESSIONS WITH UNKNOWN AMOUNT OF SUCCINYLCHOLINE
  27. SUCCINYLCHOLINE [Concomitant]
     Active Substance: SUCCINYLCHOLINE
     Dosage: 80 MILLIGRAM, UNKNOWN (ECT 13-MAINTENANCE)
     Route: 065

REACTIONS (2)
  - Serotonin syndrome [Recovered/Resolved]
  - Pneumonia aspiration [Recovered/Resolved]
